FAERS Safety Report 6837852-1 (Version None)
Quarter: 2010Q3

REPORT INFORMATION
  Report Type: 
  Country: None (occurrence: None)
  Receive Date: 20100713
  Receipt Date: 20070524
  Transmission Date: 20110219
  Serious: No
  Sender: FDA-Public Use
  Company Number: US-PFIZER INC-2007042923

PATIENT
  Sex: Female
  Weight: 109.09 kg

DRUGS (7)
  1. CHANTIX [Suspect]
     Indication: SMOKING CESSATION THERAPY
     Dates: start: 20070513
  2. LEVOTHYROXINE SODIUM [Concomitant]
     Indication: THYROID DISORDER
  3. BENAZEPRIL HYDROCHLORIDE [Concomitant]
     Indication: HYPERTENSION
  4. ATENOLOL [Concomitant]
     Indication: HYPERTENSION
  5. PREMPRO [Concomitant]
  6. EFFEXOR [Concomitant]
  7. OXYCODONE HCL AND ACETAMINOPHEN [Concomitant]
     Indication: PAIN

REACTIONS (1)
  - FATIGUE [None]
